FAERS Safety Report 17502302 (Version 2)
Quarter: 2020Q2

REPORT INFORMATION
  Report Type: Spontaneous
  Country: US (occurrence: US)
  Receive Date: 20200305
  Receipt Date: 20200608
  Transmission Date: 20200713
  Serious: Yes (Other)
  Sender: FDA-Public Use
  Company Number: US-PFIZER INC-2020096357

PATIENT
  Age: 57 Year
  Sex: Male

DRUGS (1)
  1. XELJANZ [Suspect]
     Active Substance: TOFACITINIB CITRATE
     Indication: RHEUMATOID ARTHRITIS
     Dosage: 5 MG, 2X/DAY
     Route: 048
     Dates: start: 20191202

REACTIONS (9)
  - Paraesthesia [Unknown]
  - Depression [Unknown]
  - Product dose omission [Unknown]
  - Hypoaesthesia [Unknown]
  - Frustration tolerance decreased [Unknown]
  - Intervertebral disc protrusion [Unknown]
  - Product dispensing error [Unknown]
  - Spinal fracture [Unknown]
  - Therapeutic product effect incomplete [Unknown]
